FAERS Safety Report 5221319-0 (Version None)
Quarter: 2007Q1

REPORT INFORMATION
  Report Type: 
  Country: None (occurrence: None)
  Receive Date: 20070126
  Receipt Date: 20070118
  Transmission Date: 20070707
  Serious: Yes (Hospitalization, Other)
  Sender: FDA-Public Use
  Company Number: BR-PFIZER INC-2006154811

PATIENT
  Sex: Male

DRUGS (5)
  1. VIAGRA [Suspect]
     Indication: ERECTILE DYSFUNCTION
     Route: 048
  2. CIPROFLOXACIN [Concomitant]
     Route: 048
     Dates: start: 20050101, end: 20061218
  3. CELEBRA [Concomitant]
     Route: 048
     Dates: start: 20050101, end: 20061218
  4. ATENOLOL [Concomitant]
     Route: 048
  5. SIMVASTATIN [Concomitant]
     Route: 048

REACTIONS (3)
  - CATHETERISATION CARDIAC [None]
  - ISCHAEMIA [None]
  - PROSTATIC OPERATION [None]
